FAERS Safety Report 10734097 (Version 3)
Quarter: 2015Q1

REPORT INFORMATION
  Report Type: Spontaneous
  Country: US (occurrence: US)
  Receive Date: 20150123
  Receipt Date: 20150303
  Transmission Date: 20150721
  Serious: Yes (Other)
  Sender: FDA-Public Use
  Company Number: US-GLAXOSMITHKLINE-US2015GSK006488

PATIENT
  Sex: Female

DRUGS (2)
  1. LOVAZA [Suspect]
     Active Substance: OMEGA-3-ACID ETHYL ESTERS
     Indication: ATRIAL FIBRILLATION
     Dosage: 1000 MG
     Route: 048
     Dates: start: 201308
  2. NORDIC NATURALS ALGAE OMEGA [Concomitant]

REACTIONS (2)
  - Drug ineffective [Recovered/Resolved]
  - Atrial fibrillation [Recovered/Resolved]
